FAERS Safety Report 5221899-5 (Version None)
Quarter: 2007Q1

REPORT INFORMATION
  Report Type: 
  Country: None (occurrence: None)
  Receive Date: 20070126
  Receipt Date: 20070126
  Transmission Date: 20070707
  Serious: Yes (Life-Threatening)
  Sender: FDA-Public Use
  Company Number: None

PATIENT
  Sex: Female
  Weight: 56.246 kg

DRUGS (9)
  1. VENOFER [Suspect]
     Indication: IRON DEFICIENCY ANAEMIA
     Dosage: 500MG   ONE DOSE   IV BOLUS
     Route: 040
     Dates: start: 20060824, end: 20060824
  2. RANITIDINE [Concomitant]
  3. NORVASC [Concomitant]
  4. SYNTHROID [Concomitant]
  5. AMARYL [Concomitant]
  6. ASPIRIN [Concomitant]
  7. COLCHICINE [Concomitant]
  8. AZMACORT [Concomitant]
  9. ALBUTEROL [Concomitant]

REACTIONS (12)
  - ABDOMINAL PAIN UPPER [None]
  - APHASIA [None]
  - DEPRESSED LEVEL OF CONSCIOUSNESS [None]
  - GASTRIC DISORDER [None]
  - HEART RATE DECREASED [None]
  - HYPERTENSION [None]
  - HYPOTENSION [None]
  - INFUSION RELATED REACTION [None]
  - NAUSEA [None]
  - PRESYNCOPE [None]
  - RENAL INFARCT [None]
  - VOMITING [None]
